FAERS Safety Report 21246999 (Version 1)
Quarter: 2022Q3

REPORT INFORMATION
  Report Type: Spontaneous
  Country: SG (occurrence: SG)
  Receive Date: 20220824
  Receipt Date: 20220824
  Transmission Date: 20221027
  Serious: Yes (Hospitalization)
  Sender: FDA-Public Use
  Company Number: SG-JNJFOC-20220832299

PATIENT
  Age: 41 Year
  Sex: Male

DRUGS (1)
  1. STELARA [Suspect]
     Active Substance: USTEKINUMAB
     Indication: Crohn^s disease
     Route: 040
     Dates: start: 20220714

REACTIONS (1)
  - Small intestine carcinoma [Recovering/Resolving]

NARRATIVE: CASE EVENT DATE: 20220101
